FAERS Safety Report 10526979 (Version 1)
Quarter: 2014Q4

REPORT INFORMATION
  Report Type: Spontaneous
  Country: FR (occurrence: FR)
  Receive Date: 20141020
  Receipt Date: 20141020
  Transmission Date: 20150528
  Serious: Yes (Hospitalization)
  Sender: FDA-Public Use
  Company Number: FR-ROCHE-1476067

PATIENT
  Age: 41 Year
  Sex: Female

DRUGS (4)
  1. ROACTEMRA [Suspect]
     Active Substance: TOCILIZUMAB
     Indication: RHEUMATOID ARTHRITIS
     Route: 042
     Dates: start: 201302
  2. EXACYL [Concomitant]
     Active Substance: TRANEXAMIC ACID
     Indication: DYSFUNCTIONAL UTERINE BLEEDING
     Route: 042
     Dates: start: 20140801, end: 20140810
  3. CERAZETTE (FRANCE) [Concomitant]
     Route: 048
     Dates: start: 201407
  4. LEVOTHYROX [Suspect]
     Active Substance: LEVOTHYROXINE
     Indication: PRODUCT USED FOR UNKNOWN INDICATION
     Route: 048
     Dates: start: 201405

REACTIONS (1)
  - Ischaemic stroke [Recovering/Resolving]

NARRATIVE: CASE EVENT DATE: 20140901
